FAERS Safety Report 6689156-8 (Version None)
Quarter: 2010Q2

REPORT INFORMATION
  Report Type: 
  Country: None (occurrence: None)
  Receive Date: 20100420
  Receipt Date: 20100414
  Transmission Date: 20101027
  Serious: Yes (Death)
  Sender: FDA-Public Use
  Company Number: US-BAXTER-2010BH010047

PATIENT
  Age: 13 Month

DRUGS (6)
  1. CYCLOPHOSPHAMIDE [Suspect]
     Indication: RETINOBLASTOMA
     Route: 065
  2. VINCRISTINE [Suspect]
     Indication: RETINOBLASTOMA
     Route: 065
  3. CISPLATIN [Suspect]
     Indication: RETINOBLASTOMA
     Route: 065
  4. ETOPOSIDE [Suspect]
     Indication: RETINOBLASTOMA
     Route: 065
  5. METHOTREXATE [Suspect]
     Indication: RETINOBLASTOMA
     Route: 065
  6. TEMOZOLOMIDE [Suspect]
     Indication: RETINOBLASTOMA
     Route: 065

REACTIONS (2)
  - MULTI-ORGAN FAILURE [None]
  - SEPSIS [None]
